FAERS Safety Report 7115103-0 (Version None)
Quarter: 2010Q4

REPORT INFORMATION
  Report Type: 
  Country: None (occurrence: None)
  Receive Date: 20101116
  Receipt Date: 20101116
  Transmission Date: 20110411
  Serious: Yes (Death)
  Sender: FDA-Public Use
  Company Number: None

PATIENT
  Age: 72 Year
  Sex: Male

DRUGS (7)
  1. REVLIMID [Suspect]
     Indication: MULTIPLE MYELOMA
     Dosage: 10MG  DAILY ORALLY
     Route: 048
     Dates: start: 20091217, end: 20100115
  2. COMPAZINE [Concomitant]
  3. DEXAMETHASONE [Concomitant]
  4. MEGESTEROL [Concomitant]
  5. LASIX [Concomitant]
  6. TERAZOSIN HCL [Concomitant]
  7. AZTELIN NASAL SPRAY [Concomitant]

REACTIONS (1)
  - HOSPICE CARE [None]
